FAERS Safety Report 5631841-0 (Version None)
Quarter: 2008Q1

REPORT INFORMATION
  Report Type: 
  Country: None (occurrence: None)
  Receive Date: 20080219
  Receipt Date: 20080219
  Transmission Date: 20080703
  Serious: No
  Sender: FDA-Public Use
  Company Number: None

PATIENT
  Age: 72 Year
  Sex: Female
  Weight: 81.6475 kg

DRUGS (1)
  1. PULMICORT [Suspect]
     Indication: ASTHMA
     Dosage: 1 AMPULE 2 TIMES PER DAY INHAL
     Route: 055
     Dates: start: 20070101, end: 20080217

REACTIONS (3)
  - DYSPHONIA [None]
  - EAR PAIN [None]
  - INCREASED UPPER AIRWAY SECRETION [None]
